FAERS Safety Report 5991519-0 (Version None)
Quarter: 2008Q4

REPORT INFORMATION
  Report Type: 
  Country: None (occurrence: None)
  Receive Date: 20081211
  Receipt Date: 20080430
  Transmission Date: 20090506
  Serious: No
  Sender: FDA-Public Use
  Company Number: US-AMGEN-KDL274547

PATIENT
  Sex: Female
  Weight: 42.7 kg

DRUGS (3)
  1. ENBREL [Suspect]
     Indication: RHEUMATOID ARTHRITIS
     Route: 058
     Dates: start: 20080324
  2. PREDNISONE TAB [Concomitant]
     Dates: start: 20070127
  3. ETODOLAC [Concomitant]
     Dates: start: 20080211

REACTIONS (2)
  - DRY SKIN [None]
  - ERYTHEMA [None]
